FAERS Safety Report 9658991 (Version 1)
Quarter: 2013Q4

REPORT INFORMATION
  Report Type: Spontaneous
  Country: DE (occurrence: DE)
  Receive Date: 20131031
  Receipt Date: 20131031
  Transmission Date: 20140711
  Serious: Yes (Other)
  Sender: FDA-Public Use
  Company Number: DE-ROCHE-1294764

PATIENT
  Sex: Female

DRUGS (4)
  1. HERCEPTIN [Suspect]
     Indication: BREAST CANCER METASTATIC
     Route: 065
     Dates: start: 201212
  2. RAMIPRIL [Concomitant]
     Route: 065
     Dates: start: 201310
  3. XGEVA [Concomitant]
  4. AROMASIN [Concomitant]

REACTIONS (4)
  - Rhabdomyolysis [Unknown]
  - Hyponatraemia [Unknown]
  - Blood creatinine increased [Unknown]
  - Disorientation [Unknown]
